FAERS Safety Report 23775850 (Version 2)
Quarter: 2024Q2

REPORT INFORMATION
  Report Type: Spontaneous
  Country: PT (occurrence: PT)
  Receive Date: 20240424
  Receipt Date: 20240424
  Transmission Date: 20240716
  Serious: Yes (Death)
  Sender: FDA-Public Use
  Company Number: PT-AMGEN-PRTSP2024060177

PATIENT
  Age: 52 Year
  Sex: Female
  Weight: 58 kg

DRUGS (78)
  1. ADRUCIL [Suspect]
     Active Substance: FLUOROURACIL
     Indication: HER2 positive breast cancer
     Dosage: UNK
     Route: 042
     Dates: start: 20201013
  2. CAPECITABINE [Suspect]
     Active Substance: CAPECITABINE
     Indication: HER2 positive breast cancer
     Dosage: 1300 MICROGRAM, BID, 22 DAYS
     Route: 040
     Dates: start: 20181115, end: 20181206
  3. CAPECITABINE [Suspect]
     Active Substance: CAPECITABINE
     Dosage: 1500 MICROGRAM, BID
     Route: 040
     Dates: start: 20180821, end: 20181114
  4. CAPECITABINE [Suspect]
     Active Substance: CAPECITABINE
     Dosage: 1800 MICROGRAM, BID, 86 DAYS
     Route: 040
     Dates: start: 20180529, end: 20180820
  5. CYTOXAN [Suspect]
     Active Substance: CYCLOPHOSPHAMIDE
     Indication: HER2 positive breast cancer
     Dosage: UNK (3 WEEKS)
     Route: 040
     Dates: start: 20201013, end: 20210103
  6. EFUDEX [Suspect]
     Active Substance: FLUOROURACIL
     Indication: HER2 positive breast cancer
     Dosage: UNK
     Route: 065
     Dates: start: 20201013, end: 20210103
  7. FILGRASTIM [Suspect]
     Active Substance: FILGRASTIM
     Indication: Product used for unknown indication
     Dosage: UNK
     Route: 065
     Dates: end: 20221230
  8. FLUOROPLEX [Suspect]
     Active Substance: FLUOROURACIL
     Indication: HER2 positive breast cancer
     Dosage: UNK
     Route: 042
     Dates: start: 20201013, end: 20210103
  9. GEMZAR [Suspect]
     Active Substance: GEMCITABINE HYDROCHLORIDE
     Indication: HER2 positive breast cancer
     Dosage: UNK
     Route: 065
     Dates: start: 20221214, end: 20221230
  10. HERCEPTIN [Suspect]
     Active Substance: TRASTUZUMAB
     Dosage: UNK (3 WEEKS)
     Route: 040
     Dates: start: 20221214, end: 20221230
  11. HERCEPTIN [Suspect]
     Active Substance: TRASTUZUMAB
     Indication: HER2 positive breast cancer
     Dosage: UNK (3 WEEKS)
     Route: 058
     Dates: start: 20180529, end: 20190729
  12. HERCEPTIN [Suspect]
     Active Substance: TRASTUZUMAB
     Dosage: UNK (3 WEEKS)
     Route: 058
     Dates: start: 20180529, end: 20190117
  13. HERCEPTIN [Suspect]
     Active Substance: TRASTUZUMAB
     Dosage: UNK (3 WEEKS)
     Route: 058
     Dates: start: 20190117
  14. HERCEPTIN [Suspect]
     Active Substance: TRASTUZUMAB
     Dosage: UNK (3 WEEKS)
     Route: 058
     Dates: start: 2019, end: 20190729
  15. KADCYLA [Suspect]
     Active Substance: ADO-TRASTUZUMAB EMTANSINE
     Indication: HER2 positive breast cancer
     Dosage: 190.8 MG, 3 WEEKS
     Route: 042
     Dates: start: 20180417, end: 20180508
  16. KADCYLA [Suspect]
     Active Substance: ADO-TRASTUZUMAB EMTANSINE
     Dosage: 190.8 MG, 3 WEEKS
     Route: 042
     Dates: start: 20170614, end: 20180308
  17. NAVELBINE [Suspect]
     Active Substance: VINORELBINE TARTRATE
     Indication: HER2 positive breast cancer
     Dosage: UNK (1 WEEK)
     Route: 040
     Dates: start: 20200310, end: 20201001
  18. PACLITAXEL [Suspect]
     Active Substance: PACLITAXEL
     Indication: HER2 positive breast cancer
     Dosage: UNK (1 WEEK)
     Route: 040
     Dates: start: 20190813, end: 20200211
  19. PARAPLATIN [Suspect]
     Active Substance: CARBOPLATIN
     Indication: HER2 positive breast cancer
     Dosage: UNK (3 WEEKS)
     Route: 040
     Dates: start: 20221214, end: 20221230
  20. PERJETA [Suspect]
     Active Substance: PERTUZUMAB
     Indication: HER2 positive breast cancer
     Dosage: UNK
     Route: 042
     Dates: start: 20190903, end: 20200218
  21. PERJETA [Suspect]
     Active Substance: PERTUZUMAB
     Dosage: UNK
     Route: 042
     Dates: start: 20190903
  22. PERTUZUMAB [Suspect]
     Active Substance: PERTUZUMAB
     Indication: HER2 positive breast cancer
     Dosage: UNK
     Route: 042
     Dates: start: 20190903, end: 20200218
  23. PERTUZUMAB [Suspect]
     Active Substance: PERTUZUMAB
     Dosage: UNK
     Route: 042
     Dates: start: 20190203
  24. TAXOL [Suspect]
     Active Substance: PACLITAXEL
     Indication: HER2 positive breast cancer
     Dosage: UNK
     Route: 042
     Dates: start: 20190813, end: 20200211
  25. TAXOTERE [Suspect]
     Active Substance: DOCETAXEL
     Indication: HER2 positive breast cancer
     Dosage: UNK (3 WEEKS)
     Route: 040
     Dates: start: 20210104, end: 20210629
  26. FAM-TRASTUZUMAB DERUXTECAN-NXKI [Suspect]
     Active Substance: FAM-TRASTUZUMAB DERUXTECAN-NXKI
     Indication: HER2 positive breast cancer
     Dosage: 190.8 MICROGRAM (3 WEEKS)
     Route: 042
     Dates: start: 20170614
  27. FAM-TRASTUZUMAB DERUXTECAN-NXKI [Suspect]
     Active Substance: FAM-TRASTUZUMAB DERUXTECAN-NXKI
     Dosage: UNK
     Route: 042
     Dates: start: 20210714, end: 20221124
  28. FAM-TRASTUZUMAB DERUXTECAN-NXKI [Suspect]
     Active Substance: FAM-TRASTUZUMAB DERUXTECAN-NXKI
     Dosage: UNK (29/JUL/2019)
     Route: 042
     Dates: start: 20190308
  29. TREXALL [Suspect]
     Active Substance: METHOTREXATE SODIUM
     Indication: HER2 positive breast cancer
     Dosage: UNK
     Route: 042
     Dates: start: 20201013, end: 20210103
  30. TYKERB [Suspect]
     Active Substance: LAPATINIB DITOSYLATE
     Indication: HER2 positive breast cancer
     Dosage: 1000 MG, QD
     Route: 065
     Dates: start: 20190207, end: 20190723
  31. XELODA [Suspect]
     Active Substance: CAPECITABINE
     Dosage: 1300 MILLIGRAM, QD
     Route: 048
     Dates: start: 20181115, end: 20181206
  32. XELODA [Suspect]
     Active Substance: CAPECITABINE
     Indication: Product used for unknown indication
     Dosage: 1500 MILLIGRAM, QD
     Route: 048
     Dates: start: 20180821, end: 20181114
  33. XELODA [Suspect]
     Active Substance: CAPECITABINE
     Dosage: 1800 MILLIGRAM, QD
     Route: 048
     Dates: start: 20180529, end: 20180820
  34. ACETYLCYSTEINE [Concomitant]
     Active Substance: ACETYLCYSTEINE
     Indication: Product used for unknown indication
     Dosage: UNK
     Route: 065
     Dates: start: 20221230
  35. AZITHROMYCIN [Concomitant]
     Active Substance: AZITHROMYCIN
     Indication: Product used for unknown indication
     Dosage: UNK
     Route: 065
  36. AZITHROMYCIN [Concomitant]
     Active Substance: AZITHROMYCIN
     Dosage: UNK
     Route: 065
  37. BACIDERMA [Concomitant]
     Indication: Product used for unknown indication
     Dosage: 10 GRAM
     Route: 065
     Dates: start: 20221230
  38. BISOPROLOL [Concomitant]
     Active Substance: BISOPROLOL\BISOPROLOL FUMARATE
     Indication: Product used for unknown indication
     Dosage: UNK
     Route: 065
     Dates: start: 20171129, end: 20221230
  39. BUDESONIDE [Concomitant]
     Active Substance: BUDESONIDE
     Indication: Product used for unknown indication
     Dosage: UNK
     Route: 065
     Dates: start: 20221230
  40. BUDESONIDE [Concomitant]
     Active Substance: BUDESONIDE
     Dosage: UNK
     Route: 065
     Dates: start: 20221230
  41. CALCIUM [Concomitant]
     Active Substance: CALCIUM
     Indication: Product used for unknown indication
     Dosage: UNK
     Route: 065
     Dates: start: 20170509, end: 20221230
  42. CALCIUM CARBONATE [Concomitant]
     Active Substance: CALCIUM CARBONATE
     Indication: Product used for unknown indication
     Dosage: UNK
     Route: 065
     Dates: start: 20221230
  43. CALCIUM\CHOLECALCIFEROL [Concomitant]
     Active Substance: CALCIUM\CHOLECALCIFEROL
     Indication: Product used for unknown indication
     Dosage: UNK
     Route: 065
     Dates: start: 20170509, end: 20221230
  44. CARBOPLATIN [Concomitant]
     Active Substance: CARBOPLATIN
     Indication: HER2 positive breast cancer
     Dosage: UNK (3 WEEK)
     Route: 040
     Dates: start: 20221214, end: 20221230
  45. CETIRIZINE [Concomitant]
     Active Substance: CETIRIZINE HYDROCHLORIDE
     Indication: Product used for unknown indication
     Dosage: 10 MILLIGRAM
     Route: 065
     Dates: start: 20221230
  46. CETIRIZINE [Concomitant]
     Active Substance: CETIRIZINE HYDROCHLORIDE
     Dosage: 10 MILLIGRAM
     Route: 065
     Dates: start: 20221230
  47. CHOLECALCIFEROL [Concomitant]
     Active Substance: CHOLECALCIFEROL
     Indication: Product used for unknown indication
     Dosage: 400 INTERNATIONAL UNIT
     Route: 065
     Dates: start: 20221230
  48. CHOLECALCIFEROL [Concomitant]
     Active Substance: CHOLECALCIFEROL
     Dosage: 400 INTERNATIONAL UNIT
     Route: 065
     Dates: start: 20221230
  49. FERRIC CARBOXYMALTOSE [Concomitant]
     Active Substance: FERRIC CARBOXYMALTOSE
     Indication: Product used for unknown indication
     Dosage: UNK
     Route: 065
  50. FERRIC CARBOXYMALTOSE [Concomitant]
     Active Substance: FERRIC CARBOXYMALTOSE
     Dosage: UNK
     Route: 065
  51. FILGRASTIM [Concomitant]
     Active Substance: FILGRASTIM
     Indication: Product used for unknown indication
     Dosage: UNK
     Route: 065
     Dates: start: 20170509, end: 20221230
  52. IPRATROPIUM BROMIDE [Concomitant]
     Active Substance: IPRATROPIUM BROMIDE\IPRATROPIUM BROMIDE ANHYDROUS
     Indication: Product used for unknown indication
     Dosage: UNK
     Route: 065
     Dates: start: 20221230
  53. IPRATROPIUM BROMIDE [Concomitant]
     Active Substance: IPRATROPIUM BROMIDE\IPRATROPIUM BROMIDE ANHYDROUS
     Dosage: UNK
     Route: 065
     Dates: start: 20221230
  54. IVABRADINE [Concomitant]
     Active Substance: IVABRADINE
     Indication: Ejection fraction decreased
     Dosage: UNK
     Route: 065
     Dates: start: 20180308, end: 20221230
  55. IVABRADINE [Concomitant]
     Active Substance: IVABRADINE
     Dosage: UNK
     Route: 065
     Dates: start: 20180308, end: 20221230
  56. LEVOCETIRIZINE [Concomitant]
     Active Substance: LEVOCETIRIZINE
     Indication: Product used for unknown indication
     Dosage: UNK
     Route: 065
  57. LEVOCETIRIZINE [Concomitant]
     Active Substance: LEVOCETIRIZINE
     Dosage: UNK
     Route: 065
  58. LOPERAMIDE [Concomitant]
     Active Substance: LOPERAMIDE
     Indication: Product used for unknown indication
     Dosage: 2 MILLIGRAM
     Route: 065
     Dates: start: 20221230
  59. LOPERAMIDE [Concomitant]
     Active Substance: LOPERAMIDE
     Dosage: 2 MILLIGRAM
     Route: 065
     Dates: start: 20221230
  60. METOCLOPRAMIDE [Concomitant]
     Active Substance: METOCLOPRAMIDE
     Indication: Product used for unknown indication
     Dosage: 10 MILLIGRAM
     Route: 065
     Dates: start: 20221230
  61. METOCLOPRAMIDE [Concomitant]
     Active Substance: METOCLOPRAMIDE
     Dosage: 10 MILLIGRAM
     Route: 065
     Dates: start: 20221230
  62. NALOXONE [Concomitant]
     Active Substance: NALOXONE
     Indication: Product used for unknown indication
     Dosage: 2.5 MILLIGRAM
     Route: 065
     Dates: start: 20221230
  63. NALOXONE [Concomitant]
     Active Substance: NALOXONE
     Dosage: 2.5 MILLIGRAM
     Route: 065
     Dates: start: 20221230
  64. NALOXONE [Concomitant]
     Active Substance: NALOXONE
     Dosage: UNK
     Route: 065
     Dates: start: 20221230
  65. OXYCODONE [Concomitant]
     Active Substance: OXYCODONE\OXYCODONE HYDROCHLORIDE
     Indication: Product used for unknown indication
     Dosage: 5 MILLIGRAM
     Route: 065
     Dates: start: 20221230
  66. OXYCODONE [Concomitant]
     Active Substance: OXYCODONE\OXYCODONE HYDROCHLORIDE
     Dosage: 5 MILLIGRAM
     Route: 065
     Dates: start: 20221230
  67. ACETAMINOPHEN [Concomitant]
     Active Substance: ACETAMINOPHEN
     Indication: Product used for unknown indication
     Dosage: 1000 MILLIGRAM
     Route: 065
     Dates: start: 20221230
  68. PREDNISONE [Concomitant]
     Active Substance: PREDNISONE
     Indication: Product used for unknown indication
     Dosage: UNK
     Route: 065
  69. PREDNISONE [Concomitant]
     Active Substance: PREDNISONE
     Dosage: UNK
     Route: 065
  70. PREGABALIN [Concomitant]
     Active Substance: PREGABALIN
     Indication: Product used for unknown indication
     Dosage: UNK
     Route: 065
     Dates: start: 20221230
  71. PREGABALIN [Concomitant]
     Active Substance: PREGABALIN
     Dosage: UNK
     Route: 065
     Dates: start: 20221230
  72. PYRIDOXINE [Concomitant]
     Active Substance: PYRIDOXINE
     Indication: Product used for unknown indication
     Dosage: UNK
     Route: 065
  73. PYRIDOXINE [Concomitant]
     Active Substance: PYRIDOXINE
     Dosage: UNK
     Route: 065
     Dates: start: 20221230
  74. PYRIDOXINE [Concomitant]
     Active Substance: PYRIDOXINE
     Dosage: UNK
     Route: 065
     Dates: start: 20221230
  75. RAMIPRIL [Concomitant]
     Active Substance: RAMIPRIL
     Indication: Ejection fraction decreased
     Dosage: UNK
     Route: 065
     Dates: start: 20180308, end: 20221230
  76. NALOXONE HYDROCHLORIDE\OXYCODONE HYDROCHLORIDE [Concomitant]
     Active Substance: NALOXONE HYDROCHLORIDE\OXYCODONE HYDROCHLORIDE
     Indication: Product used for unknown indication
     Dosage: UNK
     Route: 065
     Dates: start: 20170529, end: 20221230
  77. ZOLEDRONIC ACID [Concomitant]
     Active Substance: ZOLEDRONIC ACID
     Indication: Product used for unknown indication
     Dosage: UNK
     Route: 065
     Dates: start: 20170509, end: 20221230
  78. ZOLEDRONIC ACID [Concomitant]
     Active Substance: ZOLEDRONIC ACID
     Dosage: UNK
     Route: 065
     Dates: start: 20170509, end: 20221230

REACTIONS (2)
  - Pancytopenia [Fatal]
  - Pneumonia [Fatal]

NARRATIVE: CASE EVENT DATE: 20221227
